FAERS Safety Report 7512014-3 (Version None)
Quarter: 2011Q2

REPORT INFORMATION
  Report Type: 
  Country: None (occurrence: None)
  Receive Date: 20110519
  Receipt Date: 20110506
  Transmission Date: 20111010
  Serious: Yes (Other)
  Sender: FDA-Public Use
  Company Number: 1000020900

PATIENT
  Age: 86 Year
  Sex: Female

DRUGS (1)
  1. MEMANTINE [Suspect]
     Indication: DEMENTIA
     Dosage: 10 MG (10 MG, 1 IN 1 D),ORAL
     Route: 048
     Dates: start: 20110301

REACTIONS (4)
  - VERTIGO [None]
  - DISTURBANCE IN ATTENTION [None]
  - DISORIENTATION [None]
  - VISION BLURRED [None]
